FAERS Safety Report 22096148 (Version 1)
Quarter: 2023Q1

REPORT INFORMATION
  Report Type: Other
  Country: IR (occurrence: None)
  Receive Date: 20230315
  Receipt Date: 20230315
  Transmission Date: 20230418
  Serious: Yes (Death, Hospitalization, Other)
  Sender: FDA-Public Use
  Company Number: IR-Encube-000300

PATIENT
  Age: 51 Year
  Sex: Female

DRUGS (4)
  1. DICLOFENAC SODIUM [Suspect]
     Active Substance: DICLOFENAC SODIUM
     Indication: Procedural pain
     Dosage: PRN, OR AS NEEDED FOR?PAIN
     Route: 054
     Dates: start: 202206, end: 202207
  2. CEPHALEXIN [Concomitant]
     Active Substance: CEPHALEXIN
  3. HEPARIN [Concomitant]
     Active Substance: HEPARIN SODIUM
  4. MUCILLIUM [Concomitant]

REACTIONS (5)
  - Metabolic acidosis [Unknown]
  - Acute kidney injury [Unknown]
  - Cardiac arrest [Fatal]
  - Accidental overdose [Unknown]
  - Off label use [Unknown]

NARRATIVE: CASE EVENT DATE: 20220601
